FAERS Safety Report 25512219 (Version 1)
Quarter: 2025Q3

REPORT INFORMATION
  Report Type: Spontaneous
  Country: US (occurrence: US)
  Receive Date: 20250703
  Receipt Date: 20250703
  Transmission Date: 20251020
  Serious: No
  Sender: ABBVIE
  Company Number: US-ABBVIE-6355049

PATIENT
  Sex: Female

DRUGS (1)
  1. HUMIRA [Suspect]
     Active Substance: ADALIMUMAB
     Indication: Product used for unknown indication
     Route: 058

REACTIONS (7)
  - Asthenia [Recovered/Resolved]
  - Injection site urticaria [Recovered/Resolved]
  - Fatigue [Recovered/Resolved]
  - Injection site haemorrhage [Unknown]
  - Injection related reaction [Unknown]
  - Injection site pain [Not Recovered/Not Resolved]
  - Back pain [Recovering/Resolving]
